FAERS Safety Report 15779478 (Version 1)
Quarter: 2019Q1

REPORT INFORMATION
  Report Type: Spontaneous
  Country: US (occurrence: US)
  Receive Date: 20190101
  Receipt Date: 20190101
  Transmission Date: 20190417
  Serious: Yes (Hospitalization, Other)
  Sender: FDA-Public Use
  Company Number: US-DSJP-DSU-2017-138003

PATIENT

DRUGS (2)
  1. BENICAR [Suspect]
     Active Substance: OLMESARTAN MEDOXOMIL
     Indication: HYPERTENSION
     Dosage: 40 MG, QD
     Route: 048
     Dates: end: 20161012
  2. BENICAR HCT [Suspect]
     Active Substance: HYDROCHLOROTHIAZIDE\OLMESARTAN MEDOXOMIL
     Indication: PRODUCT USED FOR UNKNOWN INDICATION
     Dosage: 40/25 MG, QD
     Route: 048
     Dates: end: 20161012

REACTIONS (9)
  - Drug ineffective [Unknown]
  - Sprue-like enteropathy [Recovered/Resolved]
  - Umbilical hernia [Unknown]
  - Gastroenteritis bacterial [Unknown]
  - Dyspepsia [Recovered/Resolved]
  - Renal failure [Unknown]
  - Large intestine polyp [Recovered/Resolved]
  - Cough [Unknown]
  - Diverticulum [Unknown]

NARRATIVE: CASE EVENT DATE: 201110
